FAERS Safety Report 25339893 (Version 6)
Quarter: 2025Q4

REPORT INFORMATION
  Report Type: Spontaneous
  Country: JP (occurrence: JP)
  Receive Date: 20250521
  Receipt Date: 20251230
  Transmission Date: 20260118
  Serious: Yes (Other)
  Sender: GALDERMA
  Company Number: JP-GALDERMA-JP2025008073

PATIENT

DRUGS (6)
  1. NEMOLIZUMAB [Suspect]
     Active Substance: NEMOLIZUMAB
     Indication: Neurodermatitis
     Dosage: 60 MILLIGRAM/ 4 WEEKS
     Route: 058
     Dates: start: 20250501, end: 20250501
  2. NEMOLIZUMAB [Suspect]
     Active Substance: NEMOLIZUMAB
     Indication: Pemphigoid
  3. TRELAGLIPTIN SUCCINATE [Concomitant]
     Active Substance: TRELAGLIPTIN SUCCINATE
     Indication: Diabetes mellitus
     Route: 048
  4. RISEDRONATE SODIUM [Concomitant]
     Active Substance: RISEDRONATE SODIUM
     Indication: Osteoporosis
     Route: 048
  5. LEVOTHYROXINE [Concomitant]
     Active Substance: LEVOTHYROXINE
     Indication: Hypothyroidism
     Route: 048
  6. VIBEGRON [Concomitant]
     Active Substance: VIBEGRON
     Indication: Hypertonic bladder
     Route: 048

REACTIONS (5)
  - Pemphigoid [Recovered/Resolved]
  - Condition aggravated [Recovered/Resolved]
  - Pustule [Not Recovered/Not Resolved]
  - Erythema [Unknown]
  - Intentional product use issue [Recovered/Resolved]

NARRATIVE: CASE EVENT DATE: 20250501
